FAERS Safety Report 19473679 (Version 1)
Quarter: 2021Q2

REPORT INFORMATION
  Report Type: Spontaneous
  Country: US (occurrence: US)
  Receive Date: 20210629
  Receipt Date: 20210629
  Transmission Date: 20210717
  Serious: No
  Sender: FDA-Public Use
  Company Number: US-009507513-2106USA006863

PATIENT
  Age: 73 Year
  Sex: Male

DRUGS (6)
  1. CARMUSTINE. [Concomitant]
     Active Substance: CARMUSTINE
     Indication: GLIOBLASTOMA
  2. TEMODAR [Suspect]
     Active Substance: TEMOZOLOMIDE
     Indication: GLIOBLASTOMA MULTIFORME
     Route: 048
  3. TEMODAR [Suspect]
     Active Substance: TEMOZOLOMIDE
     Indication: METASTASES TO MENINGES
  4. BEVACIZUMAB. [Concomitant]
     Active Substance: BEVACIZUMAB
     Indication: GLIOBLASTOMA
  5. CARMUSTINE. [Concomitant]
     Active Substance: CARMUSTINE
     Indication: METASTASES TO MENINGES
  6. BEVACIZUMAB. [Concomitant]
     Active Substance: BEVACIZUMAB
     Indication: METASTASES TO MENINGES

REACTIONS (1)
  - Product use in unapproved indication [Unknown]
